FAERS Safety Report 4635403-3 (Version None)
Quarter: 2005Q2

REPORT INFORMATION
  Report Type: 
  Country: None (occurrence: None)
  Receive Date: 20050413
  Receipt Date: 20050330
  Transmission Date: 20051028
  Serious: Yes (Hospitalization)
  Sender: FDA-Public Use
  Company Number: 2005VX000275

PATIENT
  Age: 35 Year
  Sex: Female

DRUGS (7)
  1. PROSTIGMIN INJECTION (NEOSTIGMINE METILSULFATE) [Suspect]
     Indication: NEUROMUSCULAR BLOCKADE REVERSAL
     Dosage: 2 DF; INTRAVENOUS
     Route: 042
     Dates: start: 20050128, end: 20050128
  2. ATROPINE [Suspect]
     Indication: NEUROMUSCULAR BLOCKADE REVERSAL
     Dosage: 1 DF; INTRAVENOUS; 82 MG; INTRAVENOUS
     Route: 042
     Dates: start: 20050128, end: 20050128
  3. ATROPINE [Suspect]
     Indication: SHOCK
     Dosage: 1 DF; INTRAVENOUS; 82 MG; INTRAVENOUS
     Route: 042
     Dates: start: 20050128, end: 20050128
  4. ATROPINE [Suspect]
     Indication: NEUROMUSCULAR BLOCKADE REVERSAL
     Dosage: 1 DF; INTRAVENOUS; 82 MG; INTRAVENOUS
     Route: 042
     Dates: start: 20050128, end: 20050131
  5. ATROPINE [Suspect]
     Indication: SHOCK
     Dosage: 1 DF; INTRAVENOUS; 82 MG; INTRAVENOUS
     Route: 042
     Dates: start: 20050128, end: 20050131
  6. NORADRENALINE (NOREPINEPHRINE) [Concomitant]
  7. HEPARIN [Concomitant]

REACTIONS (5)
  - BRADYCARDIA [None]
  - CARDIOGENIC SHOCK [None]
  - CIRCULATORY COLLAPSE [None]
  - POST PROCEDURAL COMPLICATION [None]
  - RESPIRATORY DISTRESS [None]
